FAERS Safety Report 14899996 (Version 1)
Quarter: 2018Q2

REPORT INFORMATION
  Report Type: Spontaneous
  Country: CA (occurrence: CA)
  Receive Date: 20180516
  Receipt Date: 20180516
  Transmission Date: 20180711
  Serious: Yes (Other)
  Sender: FDA-Public Use
  Company Number: CA-AMGEN-CANSP2018063842

PATIENT
  Sex: Female

DRUGS (1)
  1. PROLIA [Suspect]
     Active Substance: DENOSUMAB
     Indication: PRODUCT USED FOR UNKNOWN INDICATION
     Dosage: UNK
     Route: 065

REACTIONS (6)
  - Throat clearing [Unknown]
  - Extrasystoles [Not Recovered/Not Resolved]
  - Pharyngeal disorder [Unknown]
  - Choking [Unknown]
  - Dysphagia [Unknown]
  - Pigmentation disorder [Unknown]
